FAERS Safety Report 5870239-7 (Version None)
Quarter: 2008Q3

REPORT INFORMATION
  Report Type: 
  Country: None (occurrence: None)
  Receive Date: 20080904
  Receipt Date: 20080825
  Transmission Date: 20090109
  Serious: Yes (Hospitalization)
  Sender: FDA-Public Use
  Company Number: FR-BRISTOL-MYERS SQUIBB COMPANY-14048326

PATIENT
  Age: 54 Year
  Sex: Male

DRUGS (3)
  1. CETUXIMAB [Suspect]
     Indication: BILIARY CANCER METASTATIC
     Route: 042
     Dates: start: 20080103
  2. GEMZAR [Suspect]
     Indication: BILIARY CANCER METASTATIC
     Route: 042
     Dates: start: 20080102
  3. ELOXATIN [Suspect]
     Indication: BILIARY CANCER METASTATIC
     Route: 042
     Dates: start: 20080103

REACTIONS (4)
  - DIZZINESS POSTURAL [None]
  - FATIGUE [None]
  - INFUSION RELATED REACTION [None]
  - NAUSEA [None]
